FAERS Safety Report 22400725 (Version 1)
Quarter: 2023Q2

REPORT INFORMATION
  Report Type: Spontaneous
  Country: US (occurrence: US)
  Receive Date: 20230602
  Receipt Date: 20230602
  Transmission Date: 20230721
  Serious: Yes (Other)
  Sender: FDA-Public Use
  Company Number: US-MLMSERVICE-20230522-4297428-1

PATIENT
  Age: 70 Year
  Sex: Female

DRUGS (1)
  1. IBUPROFEN [Suspect]
     Active Substance: IBUPROFEN
     Indication: Chronic obstructive pulmonary disease
     Dosage: UNK
     Route: 048

REACTIONS (2)
  - Peptic ulcer [Recovering/Resolving]
  - Fistula of small intestine [Recovering/Resolving]
